FAERS Safety Report 10050253 (Version 2)
Quarter: 2014Q2

REPORT INFORMATION
  Report Type: Spontaneous
  Country: US (occurrence: US)
  Receive Date: 20140401
  Receipt Date: 20140423
  Transmission Date: 20141212
  Serious: Yes (Other)
  Sender: FDA-Public Use
  Company Number: PHHY2014US037998

PATIENT
  Age: 49 Year
  Sex: Female

DRUGS (2)
  1. BROMOCRIPTINE [Suspect]
     Indication: PROLACTINOMA
     Dosage: 5 MG, BID
     Route: 048
     Dates: start: 200511, end: 2006
  2. BROMOCRIPTINE [Suspect]
     Dosage: 5 MG, DAILY
     Route: 048
     Dates: start: 2006, end: 200609

REACTIONS (4)
  - Liver function test abnormal [Recovered/Resolved]
  - Hepatic enzyme increased [Recovered/Resolved]
  - Alanine aminotransferase increased [Recovered/Resolved]
  - Aspartate aminotransferase increased [Recovered/Resolved]
